FAERS Safety Report 15980250 (Version 3)
Quarter: 2019Q1

REPORT INFORMATION
  Report Type: Report from Study
  Country: US (occurrence: US)
  Receive Date: 20190219
  Receipt Date: 20190305
  Transmission Date: 20190418
  Serious: Yes (Life-Threatening, Hospitalization)
  Sender: FDA-Public Use
  Company Number: US-SA-2016SA185145

PATIENT
  Age: 63 Year
  Sex: Female

DRUGS (4)
  1. INSULIN GLARGINE [Suspect]
     Active Substance: INSULIN GLARGINE
     Indication: TYPE 2 DIABETES MELLITUS
     Dosage: 100 U, BID
     Route: 058
  2. NOVOLOG [Concomitant]
     Active Substance: INSULIN ASPART
  3. INSULIN GLARGINE [Suspect]
     Active Substance: INSULIN GLARGINE
     Indication: TYPE 1 DIABETES MELLITUS
     Dosage: 80 U, BID
     Route: 058
  4. LEVEMIR [Concomitant]
     Active Substance: INSULIN DETEMIR
     Dosage: 50 U, BID

REACTIONS (12)
  - Product administration interrupted [Unknown]
  - Gait disturbance [Recovered/Resolved]
  - Diabetic ketoacidosis [Recovered/Resolved]
  - Product dose omission [Unknown]
  - Inability to afford medication [Unknown]
  - Weight decreased [Recovered/Resolved]
  - Pallor [Recovered/Resolved]
  - Somnolence [Unknown]
  - Blood glucose increased [Recovered/Resolved]
  - Pain [Unknown]
  - Malaise [Recovered/Resolved]
  - Eating disorder [Recovered/Resolved]

NARRATIVE: CASE EVENT DATE: 20190204
